FAERS Safety Report 7274318-1 (Version None)
Quarter: 2011Q1

REPORT INFORMATION
  Report Type: 
  Country: None (occurrence: None)
  Receive Date: 20110131
  Receipt Date: 20110131
  Transmission Date: 20110831
  Serious: Yes (Other)
  Sender: FDA-Public Use
  Company Number: None

PATIENT
  Age: 48 Year
  Sex: Female
  Weight: 68.0396 kg

DRUGS (2)
  1. LEVOTHYROXINE SODIUM [Suspect]
     Indication: HYPOTHYROIDISM
     Dosage: 88 MG DAILY PO
     Route: 048
     Dates: start: 20100610, end: 20110121
  2. SYNTHROID [Suspect]

REACTIONS (3)
  - HYPERSENSITIVITY [None]
  - BURNING SENSATION [None]
  - PRODUCT SUBSTITUTION ISSUE [None]
